FAERS Safety Report 9734347 (Version 2)
Quarter: 2014Q1

REPORT INFORMATION
  Report Type: Spontaneous
  Country: GB (occurrence: GB)
  Receive Date: 20131206
  Receipt Date: 20140107
  Transmission Date: 20141002
  Serious: Yes (Other)
  Sender: FDA-Public Use
  Company Number: GB-ROCHE-1310889

PATIENT
  Age: 41 Year
  Sex: Female

DRUGS (25)
  1. PERJETA [Suspect]
     Indication: BREAST CANCER
     Dosage: DOSE : 840 AND 420 MG
     Route: 042
     Dates: start: 20131023, end: 20131119
  2. HERCEPTIN [Concomitant]
     Route: 065
     Dates: start: 201104, end: 201110
  3. HERCEPTIN [Concomitant]
     Route: 065
     Dates: start: 201111, end: 201205
  4. HERCEPTIN [Concomitant]
     Dosage: DOSE 546 + 370 MG
     Route: 042
     Dates: start: 20131024, end: 20131119
  5. DOCETAXEL [Concomitant]
     Indication: BREAST CANCER
     Route: 042
     Dates: start: 20131025, end: 20131120
  6. DOCETAXEL [Concomitant]
     Route: 065
     Dates: start: 201104, end: 201107
  7. PALONOSETRON [Concomitant]
     Indication: PROPHYLAXIS OF NAUSEA AND VOMITING
     Route: 042
     Dates: start: 20131025, end: 20131120
  8. NEULASTA [Concomitant]
     Route: 058
     Dates: start: 20131026, end: 20131121
  9. LANSOPRAZOLE [Concomitant]
     Route: 048
  10. DEXAMETHASONE [Concomitant]
     Dosage: VARIABLE REGULAR DOSE PLUS 8 MG BD FOR 3 DAYS STARTING DAY BEFORE DOCETAXEL.
     Route: 065
  11. DOMPERIDONE [Concomitant]
     Route: 065
  12. LEVOTHYROXINE [Concomitant]
     Route: 065
  13. PREGABALIN [Concomitant]
     Route: 065
  14. CLINDAMYCIN [Concomitant]
     Route: 065
  15. OXYCONTIN [Concomitant]
     Route: 065
  16. PARACETAMOL [Concomitant]
     Route: 065
  17. ACICLOVIR [Concomitant]
     Route: 065
  18. FENTANYL PATCH [Concomitant]
     Dosage: 62 MCG/HR
     Route: 065
  19. FRAGMIN [Concomitant]
     Dosage: FREQUNCY: OD
     Route: 065
  20. CYCLIZINE [Concomitant]
     Dosage: FREQUNCY: TDS PRN
     Route: 065
  21. OXYNORM [Concomitant]
     Route: 065
  22. ABSTRAL [Concomitant]
     Route: 065
  23. ZOPICLONE [Concomitant]
     Route: 065
  24. GABAPENTIN [Concomitant]
  25. ZOLEDRONIC ACID [Concomitant]
     Route: 065
     Dates: start: 201306, end: 201311

REACTIONS (1)
  - Thrombocytopenia [Unknown]
